FAERS Safety Report 5593300-3 (Version None)
Quarter: 2008Q1

REPORT INFORMATION
  Report Type: 
  Country: None (occurrence: None)
  Receive Date: 20080116
  Receipt Date: 20080111
  Transmission Date: 20080703
  Serious: Yes (Death)
  Sender: FDA-Public Use
  Company Number: A0703411A

PATIENT
  Age: 76 Year
  Sex: Female
  Weight: 73 kg

DRUGS (1)
  1. SERETIDE [Suspect]
     Route: 055
     Dates: start: 20070110, end: 20070704

REACTIONS (1)
  - DEATH [None]
